FAERS Safety Report 9017223 (Version 2)
Quarter: 2013Q1

REPORT INFORMATION
  Report Type: Report from Study
  Country: DE (occurrence: DE)
  Receive Date: 20130117
  Receipt Date: 20130227
  Transmission Date: 20140127
  Serious: Yes (Hospitalization)
  Sender: FDA-Public Use
  Company Number: DE-ABBOTT-13P-062-1036211-00

PATIENT
  Age: 43 Year
  Sex: Male
  Weight: 75 kg

DRUGS (2)
  1. HUMIRA [Suspect]
     Indication: CROHN^S DISEASE
     Route: 058
     Dates: start: 20120802, end: 201211
  2. HUMIRA [Suspect]
     Route: 058
     Dates: start: 201211

REACTIONS (3)
  - Gastrointestinal disorder [Recovered/Resolved]
  - Fistula [Recovered/Resolved]
  - Lymphadenitis [Recovered/Resolved]
